FAERS Safety Report 4717937-6 (Version None)
Quarter: 2005Q3

REPORT INFORMATION
  Report Type: 
  Country: None (occurrence: None)
  Receive Date: 20050718
  Receipt Date: 20050518
  Transmission Date: 20060218
  Serious: Yes (Other)
  Sender: FDA-Public Use
  Company Number: 05-000111

PATIENT
  Age: 56 Year
  Sex: Female
  Weight: 68 kg

DRUGS (5)
  1. FEMRING [Suspect]
     Indication: HOT FLUSH
     Dosage: 0.05 MG, QD, VAGINAL
     Route: 067
     Dates: start: 20030801, end: 20050209
  2. FOSAMAX [Concomitant]
  3. CALCIUM (CALCIUM) [Concomitant]
  4. MULTIVITAMINS (ASCORBIC ACID, ERGOCALCIFEROL, FOLIC ACID, NICOTINAMIDE [Concomitant]
  5. ASPIRIN [Concomitant]

REACTIONS (2)
  - BREAST DISORDER FEMALE [None]
  - FIBROCYSTIC BREAST DISEASE [None]
